FAERS Safety Report 8595771-7 (Version None)
Quarter: 2012Q3

REPORT INFORMATION
  Report Type: 
  Country: None (occurrence: None)
  Receive Date: 20120815
  Receipt Date: 20120810
  Transmission Date: 20120928
  Serious: Yes (Death, Hospitalization, Other)
  Sender: FDA-Public Use
  Company Number: BE-ELI_LILLY_AND_COMPANY-BE201205005031

PATIENT
  Sex: Female
  Weight: 64 kg

DRUGS (6)
  1. DEXAMETHASONE [Concomitant]
  2. BISOPROLOL FUMARATE [Concomitant]
     Indication: HYPERTENSION
  3. ALIMTA [Suspect]
     Dosage: 500 MG/M2, UNKNOWN
  4. VITAMIN B-12 [Concomitant]
  5. ALIMTA [Suspect]
     Indication: THYMOMA MALIGNANT
     Dosage: 500 MG/M2, UNKNOWN
     Route: 042
     Dates: start: 20120131
  6. FOLIC ACID [Concomitant]

REACTIONS (4)
  - DEATH [None]
  - DYSPNOEA EXERTIONAL [None]
  - INTERSTITIAL LUNG DISEASE [None]
  - OFF LABEL USE [None]
